FAERS Safety Report 8101336-3 (Version None)
Quarter: 2012Q1

REPORT INFORMATION
  Report Type: 
  Country: None (occurrence: None)
  Receive Date: 20120131
  Receipt Date: 20120123
  Transmission Date: 20120608
  Serious: Yes (Hospitalization, Other)
  Sender: FDA-Public Use
  Company Number: JP-EISAI INC-E7389-01987-CLI-JP

PATIENT
  Sex: Female
  Weight: 56 kg

DRUGS (19)
  1. AMOXICILLIN [Concomitant]
     Route: 048
  2. CONCENTRATED RED CELLS [Concomitant]
     Route: 041
  3. INCREMIN [Concomitant]
     Route: 048
  4. METRONIDAZOLE [Concomitant]
  5. KAKKON-TO [Concomitant]
     Route: 048
  6. EURAX [Concomitant]
     Route: 065
  7. HALAVEN [Suspect]
     Indication: METASTASES TO SKIN
  8. MAGMITT [Concomitant]
     Indication: PROPHYLAXIS
     Route: 048
  9. GABAPENTIN [Concomitant]
     Route: 048
  10. RABEPRAZOLE SODIUM [Concomitant]
     Indication: PROPHYLAXIS
     Route: 048
  11. HALAVEN [Suspect]
     Indication: BREAST CANCER RECURRENT
     Route: 041
     Dates: start: 20110817
  12. PERAPRIN [Concomitant]
     Indication: PROPHYLAXIS
     Route: 048
  13. GRANISETRON [Concomitant]
     Indication: PROPHYLAXIS
     Route: 041
  14. PACIF [Concomitant]
     Route: 048
  15. FLURBIPROFEN [Concomitant]
     Indication: PAIN PROPHYLAXIS
     Route: 041
  16. LOXOMARIN [Concomitant]
     Route: 048
  17. RELIFEN [Concomitant]
     Route: 048
  18. MORPHINE [Concomitant]
     Route: 048
  19. SOLU-CORTEF [Concomitant]
     Route: 041

REACTIONS (2)
  - NEUTROPENIA [None]
  - SEPSIS [None]
